FAERS Safety Report 4685120-9 (Version None)
Quarter: 2005Q2

REPORT INFORMATION
  Report Type: 
  Country: None (occurrence: None)
  Receive Date: 20050608
  Receipt Date: 20050601
  Transmission Date: 20051028
  Serious: Yes (Hospitalization, Other)
  Sender: FDA-Public Use
  Company Number: US-ABBOTT-05P-163-0301999-00

PATIENT
  Sex: Female
  Weight: 107 kg

DRUGS (5)
  1. HUMIRA [Suspect]
     Indication: RHEUMATOID ARTHRITIS
     Route: 058
     Dates: start: 20050501
  2. LANSOPRAZOLE [Concomitant]
     Indication: GASTROOESOPHAGEAL REFLUX DISEASE
     Route: 048
     Dates: start: 20040101
  3. PREDNISONE TAB [Concomitant]
     Indication: ASTHMA
     Route: 048
     Dates: start: 20020101
  4. LEVOTHYROXINE SODIUM [Concomitant]
     Indication: HYPOTHYROIDISM
     Route: 048
     Dates: start: 19800101
  5. MIDODRINE HCL [Concomitant]
     Indication: TACHYCARDIA
     Route: 048
     Dates: start: 20041001

REACTIONS (3)
  - ASTHMA [None]
  - LUNG INFILTRATION [None]
  - PULMONARY THROMBOSIS [None]
